FAERS Safety Report 13925030 (Version 1)
Quarter: 2017Q3

REPORT INFORMATION
  Report Type: Spontaneous
  Country: US (occurrence: US)
  Receive Date: 20170831
  Receipt Date: 20170831
  Transmission Date: 20171127
  Serious: No
  Sender: FDA-Public Use
  Company Number: US-009507513-1708USA009374

PATIENT
  Age: 20 Year
  Sex: Female
  Weight: 73.47 kg

DRUGS (1)
  1. NEXPLANON [Suspect]
     Active Substance: ETONOGESTREL
     Indication: CONTRACEPTION
     Dosage: 1 LEFT-ARM IMPLANT, EVERY 3 YEARS
     Route: 059
     Dates: start: 20160420

REACTIONS (7)
  - Weight increased [Unknown]
  - Fatigue [Unknown]
  - Migraine [Unknown]
  - Metrorrhagia [Unknown]
  - Hot flush [Unknown]
  - Muscle spasms [Unknown]
  - Mood swings [Unknown]

NARRATIVE: CASE EVENT DATE: 20160420
